FAERS Safety Report 15722404 (Version 1)
Quarter: 2018Q4

REPORT INFORMATION
  Report Type: Spontaneous
  Country: US (occurrence: US)
  Receive Date: 20181213
  Receipt Date: 20181213
  Transmission Date: 20190205
  Serious: Yes (Other)
  Sender: FDA-Public Use
  Company Number: None

PATIENT
  Age: 67 Year
  Sex: Female
  Weight: 48.6 kg

DRUGS (1)
  1. AXICABTAGENE CILOLEUCAL [Suspect]
     Active Substance: AXICABTAGENE CILOLEUCEL
     Indication: DIFFUSE LARGE B-CELL LYMPHOMA
     Dosage: ?          OTHER FREQUENCY:ONCE;OTHER ROUTE:INFUSED VIA CENTRAL LINE?
     Dates: start: 20180711, end: 20180711

REACTIONS (11)
  - Encephalopathy [None]
  - 5q minus syndrome [None]
  - Myelodysplastic syndrome [None]
  - Cytokine release syndrome [None]
  - Constipation [None]
  - Arthralgia [None]
  - Karyotype analysis abnormal [None]
  - Abnormal dreams [None]
  - Pancytopenia [None]
  - Febrile neutropenia [None]
  - Erythropoiesis abnormal [None]

NARRATIVE: CASE EVENT DATE: 20181022
